FAERS Safety Report 16830839 (Version 1)
Quarter: 2019Q3

REPORT INFORMATION
  Report Type: Spontaneous
  Country: CN (occurrence: CN)
  Receive Date: 20190920
  Receipt Date: 20190920
  Transmission Date: 20191005
  Serious: Yes (Hospitalization)
  Sender: FDA-Public Use
  Company Number: CN-BAXTER-2019BAX018256

PATIENT
  Age: 62 Year
  Sex: Female
  Weight: 52 kg

DRUGS (4)
  1. ENDOXAN [Suspect]
     Active Substance: CYCLOPHOSPHAMIDE
     Indication: BREAST CANCER
     Dosage: ENDOXAN + 0.9% SODIUM CHLORIDE INJECTION
     Route: 040
     Dates: start: 20190816, end: 20190816
  2. 0.9% SODIUM CHLORIDE INJECTION [Suspect]
     Active Substance: SODIUM CHLORIDE
     Indication: MEDICATION DILUTION
     Dosage: ENDOXAN + 0.9% SODIUM CHLORIDE INJECTION
     Route: 040
     Dates: start: 20190816, end: 20190816
  3. 0.9% SODIUM CHLORIDE INJECTION [Suspect]
     Active Substance: SODIUM CHLORIDE
     Dosage: AISU + 0.9% SODIUM CHLORIDE
     Route: 041
     Dates: start: 20190816, end: 20190816
  4. AISU [Suspect]
     Active Substance: DOCETAXEL
     Indication: BREAST CANCER
     Dosage: AISU + 0.9% SODIUM CHLORIDE
     Route: 041
     Dates: start: 20190816, end: 20190816

REACTIONS (2)
  - Hepatic function abnormal [Unknown]
  - Bone marrow failure [Unknown]

NARRATIVE: CASE EVENT DATE: 20190827
